FAERS Safety Report 7632217-7 (Version None)
Quarter: 2011Q3

REPORT INFORMATION
  Report Type: 
  Country: None (occurrence: None)
  Receive Date: 20110725
  Receipt Date: 20100629
  Transmission Date: 20111222
  Serious: Yes (Life-Threatening)
  Sender: FDA-Public Use
  Company Number: US-BRISTOL-MYERS SQUIBB COMPANY-15155278

PATIENT
  Age: 63 Year
  Sex: Female
  Weight: 50 kg

DRUGS (2)
  1. COUMADIN [Suspect]
     Indication: ABDOMINAL OPERATION
     Dosage: 29APR2010:2MAY2010:5MG 3MAY2010:4MAY2010:6MG (DOSE INCREASED) 07MAY10:6MG
     Route: 048
     Dates: start: 20100429
  2. LOVENOX [Suspect]
     Indication: ABDOMINAL OPERATION
     Dosage: 29APR10X1:40 MG INCREASED  30APR2010-4MAY2010:60MG, EVERY 12 HOURS 10MG/0.1ML
     Route: 058
     Dates: start: 20100429

REACTIONS (2)
  - ABDOMINAL WALL HAEMATOMA [None]
  - HAEMATOMA [None]
